FAERS Safety Report 8180193-3 (Version None)
Quarter: 2012Q1

REPORT INFORMATION
  Report Type: 
  Country: None (occurrence: None)
  Receive Date: 20120302
  Receipt Date: 20120223
  Transmission Date: 20120608
  Serious: Yes (Hospitalization)
  Sender: FDA-Public Use
  Company Number: US-BAYER-2011-032353

PATIENT
  Age: 25 Year
  Sex: Female

DRUGS (8)
  1. YASMIN [Suspect]
     Indication: CONTRACEPTION
     Dosage: UNK
     Dates: start: 20021101, end: 20030801
  2. SINGULAIR [Concomitant]
     Dosage: 10 MG, QD
     Route: 048
  3. ALLEGRA [Concomitant]
     Dosage: 180 MG, QD
     Route: 048
  4. LEVOXYL [Concomitant]
     Dosage: 125 MCG/24HR, UNK
     Route: 048
  5. ALDACTONE [Concomitant]
     Dosage: 100 MG, BID
     Route: 048
  6. ZELNORM [Concomitant]
     Dosage: 6 MG, QD
     Route: 048
  7. YASMIN [Suspect]
     Dosage: UNK
     Dates: start: 20040201, end: 20040701
  8. GLUCOPHAGE [Concomitant]
     Dosage: 500 MG, BID
     Route: 048

REACTIONS (2)
  - CHOLECYSTITIS CHRONIC [None]
  - CHOLELITHIASIS [None]
